FAERS Safety Report 6306865-0 (Version None)
Quarter: 2009Q3

REPORT INFORMATION
  Report Type: 
  Country: None (occurrence: None)
  Receive Date: 20090811
  Receipt Date: 20090811
  Transmission Date: 20100115
  Serious: Yes (Other)
  Sender: FDA-Public Use
  Company Number: None

PATIENT
  Age: 80 Year
  Sex: Female
  Weight: 54.54 kg

DRUGS (1)
  1. VENOFER [Suspect]
     Indication: IRON DEFICIENCY ANAEMIA
     Dosage: 500 MG ONCE IV DRIP
     Route: 041
     Dates: start: 20090721, end: 20090721

REACTIONS (6)
  - BLOOD PRESSURE DECREASED [None]
  - JOINT SWELLING [None]
  - PRURITUS [None]
  - RASH [None]
  - UNRESPONSIVE TO STIMULI [None]
  - VOMITING [None]
